FAERS Safety Report 6253392-5 (Version None)
Quarter: 2009Q2

REPORT INFORMATION
  Report Type: 
  Country: None (occurrence: None)
  Receive Date: 20090626
  Receipt Date: 20080522
  Transmission Date: 20091009
  Serious: Yes (Other)
  Sender: FDA-Public Use
  Company Number: 566217

PATIENT
  Age: 65 Year
  Sex: Female

DRUGS (3)
  1. XELODA [Suspect]
     Indication: BREAST CANCER METASTATIC
     Dates: start: 20070101, end: 20080101
  2. XELODA [Suspect]
     Indication: BREAST CANCER STAGE IV
     Dates: start: 20070101, end: 20080101
  3. TYKERB [Suspect]
     Indication: BREAST CANCER STAGE IV
     Dates: start: 20070101, end: 20080101

REACTIONS (2)
  - ENCEPHALOPATHY [None]
  - NECK PAIN [None]
